FAERS Safety Report 13158257 (Version 1)
Quarter: 2017Q1

REPORT INFORMATION
  Report Type: Spontaneous
  Country: US (occurrence: US)
  Receive Date: 20170126
  Receipt Date: 20170126
  Transmission Date: 20170509
  Serious: Yes (Hospitalization)
  Sender: FDA-Public Use
  Company Number: None

PATIENT
  Age: 36 Year
  Sex: Male
  Weight: 90.1 kg

DRUGS (1)
  1. HYDROMORPHONE [Suspect]
     Active Substance: HYDROMORPHONE
     Indication: PAIN
     Dosage: 1 MG OTHER IV
     Route: 042
     Dates: start: 20131015, end: 20131015

REACTIONS (4)
  - Rash [None]
  - Pruritus [None]
  - Urticaria [None]
  - Angioedema [None]

NARRATIVE: CASE EVENT DATE: 20131015
